FAERS Safety Report 24571213 (Version 2)
Quarter: 2025Q1

REPORT INFORMATION
  Report Type: Spontaneous
  Country: US (occurrence: US)
  Receive Date: 20241101
  Receipt Date: 20250306
  Transmission Date: 20250409
  Serious: Yes (Other)
  Sender: MERZ
  Company Number: US-Merz Pharmaceuticals GmbH-2024100000231

PATIENT

DRUGS (28)
  1. XEOMIN [Suspect]
     Active Substance: INCOBOTULINUMTOXINA
     Indication: Torticollis
     Route: 030
     Dates: start: 202409, end: 202409
  2. XEOMIN [Suspect]
     Active Substance: INCOBOTULINUMTOXINA
     Route: 030
     Dates: start: 202310, end: 202310
  3. XEOMIN [Suspect]
     Active Substance: INCOBOTULINUMTOXINA
     Route: 030
     Dates: start: 202401, end: 202401
  4. XEOMIN [Suspect]
     Active Substance: INCOBOTULINUMTOXINA
     Dosage: 70 INTERNATIONAL UNIT
     Route: 030
     Dates: start: 202402, end: 202402
  5. XEOMIN [Suspect]
     Active Substance: INCOBOTULINUMTOXINA
     Route: 030
     Dates: start: 202405, end: 202405
  6. XEOMIN [Suspect]
     Active Substance: INCOBOTULINUMTOXINA
     Dosage: 200 INTERNATIONAL UNIT
     Route: 030
     Dates: start: 20241220, end: 20241220
  7. BOTOX [Concomitant]
     Active Substance: ONABOTULINUMTOXINA
     Indication: Neuromuscular blocking therapy
  8. BOTOX [Concomitant]
     Active Substance: ONABOTULINUMTOXINA
  9. AMOXICILLIN [Concomitant]
     Active Substance: AMOXICILLIN
  10. UNSPECIFIED INGREDIENT [Concomitant]
     Active Substance: UNSPECIFIED INGREDIENT
     Indication: Pain
  11. CYMBALTA [Concomitant]
     Active Substance: DULOXETINE HYDROCHLORIDE
  12. CHLORTHALIDONE [Concomitant]
     Active Substance: CHLORTHALIDONE
  13. LAMOTRIGINE [Concomitant]
     Active Substance: LAMOTRIGINE
     Dates: end: 202310
  14. TIZANIDINE [Concomitant]
     Active Substance: TIZANIDINE
     Indication: Muscle contracture
  15. DIAZEPAM [Concomitant]
     Active Substance: DIAZEPAM
     Indication: Muscle contracture
  16. DIAZEPAM [Concomitant]
     Active Substance: DIAZEPAM
     Indication: Facial pain
  17. LORAZEPAM [Concomitant]
     Active Substance: LORAZEPAM
     Indication: Muscle contracture
  18. NEURONTIN [Concomitant]
     Active Substance: GABAPENTIN
     Indication: Muscle contracture
     Dosage: 300 MILLIGRAM
  19. NEURONTIN [Concomitant]
     Active Substance: GABAPENTIN
     Dosage: 600 MILLIGRAM
  20. SEROQUEL [Concomitant]
     Active Substance: QUETIAPINE FUMARATE
  21. ABILIFY [Concomitant]
     Active Substance: ARIPIPRAZOLE
  22. CEFIXIME [Concomitant]
     Active Substance: CEFIXIME
  23. ROBAXIN [Concomitant]
     Active Substance: METHOCARBAMOL
     Indication: Muscle spasticity
     Dosage: 750 MILLIGRAM
     Route: 048
     Dates: start: 202308
  24. ELAVIL [Concomitant]
     Active Substance: AMITRIPTYLINE HYDROCHLORIDE
     Indication: Facial pain
     Dosage: 50 MILLIGRAM
     Route: 048
  25. ELAVIL [Concomitant]
     Active Substance: AMITRIPTYLINE HYDROCHLORIDE
     Route: 048
     Dates: start: 20241220
  26. NORVASC [Concomitant]
     Active Substance: AMLODIPINE BESYLATE
     Dosage: 5 MILLIGRAM
     Route: 048
  27. CRESTOR [Concomitant]
     Active Substance: ROSUVASTATIN CALCIUM
     Dosage: 10 MILLIGRAM
     Route: 048
  28. LISINOPRIL [Concomitant]
     Active Substance: LISINOPRIL
     Dosage: 10 MILLIGRAM
     Route: 048

REACTIONS (3)
  - Choking [Unknown]
  - Therapeutic response decreased [Unknown]
  - Dysphagia [Recovered/Resolved]

NARRATIVE: CASE EVENT DATE: 20240101
